FAERS Safety Report 12009627 (Version 7)
Quarter: 2016Q2

REPORT INFORMATION
  Report Type: Spontaneous
  Country: US (occurrence: US)
  Receive Date: 20160205
  Receipt Date: 20160502
  Transmission Date: 20160815
  Serious: Yes (Hospitalization)
  Sender: FDA-Public Use
  Company Number: US-PFIZER INC-2015307028

PATIENT
  Age: 65 Year
  Sex: Female
  Weight: 50 kg

DRUGS (11)
  1. PRILOSEC [Concomitant]
     Active Substance: OMEPRAZOLE MAGNESIUM
     Indication: ABDOMINAL PAIN
     Dosage: UNK
  2. SUTENT [Suspect]
     Active Substance: SUNITINIB MALATE
     Indication: SMALL CELL LUNG CANCER METASTATIC
     Dosage: 50 MG, CYCLIC (DAILY FOR 3 WEEKS ON / 1 WEEK OFF)
     Dates: start: 20160120, end: 20160216
  3. SUTENT [Suspect]
     Active Substance: SUNITINIB MALATE
     Dosage: 50 MG, CYCLIC(2 WEEKS ON/1 WEEK OFF)
     Dates: start: 20160120
  4. SUTENT [Suspect]
     Active Substance: SUNITINIB MALATE
     Dosage: 50 MG, CYCLIC(2 WEEKS ON/1 WEEK OFF)
     Dates: start: 20160310
  5. IRBESARTAN. [Concomitant]
     Active Substance: IRBESARTAN
     Dosage: UNK
  6. PRILOSEC [Concomitant]
     Active Substance: OMEPRAZOLE MAGNESIUM
     Indication: FLATULENCE
  7. METAMUCIL [Concomitant]
     Active Substance: PLANTAGO SEED
     Indication: FLATULENCE
  8. POTASSIUM [Concomitant]
     Active Substance: POTASSIUM
     Dosage: UNK
  9. MAGNESIUM [Concomitant]
     Active Substance: MAGNESIUM
     Dosage: UNK
  10. METAMUCIL [Concomitant]
     Active Substance: PLANTAGO SEED
     Indication: ABDOMINAL PAIN
  11. SYNTHROID [Concomitant]
     Active Substance: LEVOTHYROXINE SODIUM
     Dosage: UNK

REACTIONS (18)
  - Decreased appetite [Unknown]
  - Blood magnesium decreased [Unknown]
  - Small cell lung cancer [Unknown]
  - Disease progression [Unknown]
  - Nausea [Unknown]
  - Weight decreased [Unknown]
  - Fluid intake reduced [Unknown]
  - Pneumonia [Unknown]
  - Product use issue [Unknown]
  - Constipation [Unknown]
  - Dehydration [Unknown]
  - Abdominal pain upper [Unknown]
  - Burning sensation [Unknown]
  - Dyspnoea [Recovering/Resolving]
  - Blood potassium decreased [Unknown]
  - Abdominal discomfort [Unknown]
  - Yellow skin [Unknown]
  - Chest pain [Unknown]

NARRATIVE: CASE EVENT DATE: 2016
